FAERS Safety Report 7919798-0 (Version None)
Quarter: 2011Q4

REPORT INFORMATION
  Report Type: 
  Country: None (occurrence: None)
  Receive Date: 20111115
  Receipt Date: 20111103
  Transmission Date: 20120403
  Serious: Yes (Death, Hospitalization)
  Sender: FDA-Public Use
  Company Number: 126107

PATIENT
  Age: 24 Year
  Sex: Male

DRUGS (1)
  1. KETAMINE HCL [Suspect]
     Indication: SUICIDE ATTEMPT

REACTIONS (10)
  - MEDICATION ERROR [None]
  - INFECTION [None]
  - CHOLESTASIS [None]
  - BRAIN DEATH [None]
  - OVERDOSE [None]
  - HEPATIC STEATOSIS [None]
  - ACUTE HEPATIC FAILURE [None]
  - ANISOCYTOSIS [None]
  - SEPTIC EMBOLUS [None]
  - HEPATIC FAILURE [None]
